FAERS Safety Report 17835332 (Version 8)
Quarter: 2020Q4

REPORT INFORMATION
  Report Type: Spontaneous
  Country: US (occurrence: US)
  Receive Date: 20200528
  Receipt Date: 20201217
  Transmission Date: 20210113
  Serious: Yes (Congenital Anomaly, Other)
  Sender: FDA-Public Use
  Company Number: NVSC2020US147399

PATIENT
  Sex: Male

DRUGS (1)
  1. ZOFRAN [Suspect]
     Active Substance: ONDANSETRON HYDROCHLORIDE
     Indication: FOETAL EXPOSURE DURING PREGNANCY
     Dosage: MOTHER DOSE: 4 MG, TID
     Route: 064

REACTIONS (39)
  - Deafness [Unknown]
  - Anaemia [Unknown]
  - Sleep disorder [Unknown]
  - Dehydration [Unknown]
  - Skin laceration [Unknown]
  - Atrial septal defect [Unknown]
  - Pneumonia [Unknown]
  - Attention deficit hyperactivity disorder [Unknown]
  - Cerebral ventricle dilatation [Unknown]
  - Otitis media [Unknown]
  - Coarctation of the aorta [Unknown]
  - Craniocerebral injury [Unknown]
  - Nasopharyngitis [Unknown]
  - Wheezing [Unknown]
  - Injury [Unknown]
  - Ear infection [Unknown]
  - Illness [Unknown]
  - Dyspnoea [Unknown]
  - Migraine with aura [Unknown]
  - Fall [Unknown]
  - Head injury [Unknown]
  - Foetal exposure during pregnancy [Unknown]
  - Asthma [Unknown]
  - Speech disorder developmental [Unknown]
  - Oropharyngeal pain [Unknown]
  - Respiratory distress [Unknown]
  - Cardiac murmur [Unknown]
  - Dental caries [Unknown]
  - Reading disorder [Unknown]
  - Fatigue [Unknown]
  - Vomiting [Unknown]
  - Paranasal sinus inflammation [Unknown]
  - Pharyngitis [Unknown]
  - Learning disorder [Unknown]
  - Soft tissue swelling [Unknown]
  - Aneurysm [Unknown]
  - Cough [Unknown]
  - Haematoma [Unknown]
  - Ear pain [Unknown]
